FAERS Safety Report 23153666 (Version 1)
Quarter: 2023Q4

REPORT INFORMATION
  Report Type: Spontaneous
  Country: US (occurrence: None)
  Receive Date: 20231106
  Receipt Date: 20231106
  Transmission Date: 20240110
  Serious: Yes (Disabling)
  Sender: FDA-Public Use
  Company Number: None

PATIENT
  Age: 39 Year
  Sex: Male
  Weight: 60.75 kg

DRUGS (6)
  1. FINASTERIDE [Suspect]
     Active Substance: FINASTERIDE
     Indication: Androgenetic alopecia
     Dosage: FREQUENCY : TWICE A DAY;?
     Route: 061
  2. MINOXIDIL [Suspect]
     Active Substance: MINOXIDIL
  3. HYDROCORTISONE [Suspect]
     Active Substance: HYDROCORTISONE
  4. DEVICE [Concomitant]
     Active Substance: DEVICE
  5. IBUPROFEN [Concomitant]
     Active Substance: IBUPROFEN
  6. VITAMINS [Concomitant]
     Active Substance: VITAMINS

REACTIONS (8)
  - Cognitive disorder [None]
  - Muscular weakness [None]
  - Dizziness [None]
  - Fatigue [None]
  - Muscle spasms [None]
  - Abdominal distension [None]
  - Eye disorder [None]
  - Palpitations [None]

NARRATIVE: CASE EVENT DATE: 20230915
